FAERS Safety Report 5167836-3 (Version None)
Quarter: 2006Q4

REPORT INFORMATION
  Report Type: 
  Country: None (occurrence: None)
  Receive Date: 20061130
  Receipt Date: 20061130
  Transmission Date: 20070319
  Serious: Yes (Hospitalization)
  Sender: FDA-Public Use
  Company Number: None

PATIENT
  Age: 40 Year
  Sex: Male
  Weight: 86.1834 kg

DRUGS (1)
  1. UROXATRAL [Suspect]
     Indication: DRUG LEVEL
     Dosage: 10 MG ONCE PO
     Route: 048
     Dates: start: 20061112, end: 20061112

REACTIONS (1)
  - MYOCARDIAL INFARCTION [None]
